FAERS Safety Report 10318654 (Version 2)
Quarter: 2014Q3

REPORT INFORMATION
  Report Type: Other
  Country: US (occurrence: US)
  Receive Date: 20140719
  Receipt Date: 20140719
  Transmission Date: 20150326
  Serious: No
  Sender: FDA-Public Use
  Company Number: US-GSKPPD-2014GSK002773

PATIENT
  Age: 56 Year
  Sex: Female
  Weight: 109.41 kg

DRUGS (7)
  1. NITROGLYCERINE [Concomitant]
     Active Substance: NITROGLYCERIN
     Route: 061
  2. AVANDIA [Suspect]
     Active Substance: ROSIGLITAZONE MALEATE
     Indication: DIABETES MELLITUS
     Route: 048
  3. PLAVIX [Concomitant]
     Active Substance: CLOPIDOGREL BISULFATE
     Route: 048
     Dates: start: 20030318
  4. AVANDAMET [Suspect]
     Active Substance: METFORMIN HYDROCHLORIDE\ROSIGLITAZONE MALEATE
     Indication: DIABETES MELLITUS
     Dosage: 2/1000 MG
     Route: 048
     Dates: start: 20030421, end: 20030505
  5. ZOCOR [Concomitant]
     Active Substance: SIMVASTATIN
     Route: 048
     Dates: start: 20030421
  6. NITROGLYCERINE [Concomitant]
     Active Substance: NITROGLYCERIN
     Route: 060
  7. MAXZIDE [Concomitant]
     Active Substance: HYDROCHLOROTHIAZIDE\TRIAMTERENE
     Dosage: 37.5/25 MG
     Route: 048
     Dates: start: 20030318

REACTIONS (3)
  - Hyperlipidaemia [None]
  - Hypertension [None]
  - Cardiac flutter [None]

NARRATIVE: CASE EVENT DATE: 20030405
